FAERS Safety Report 14132941 (Version 1)
Quarter: 2017Q4

REPORT INFORMATION
  Report Type: Report from Study
  Country: US (occurrence: US)
  Receive Date: 20171027
  Receipt Date: 20171027
  Transmission Date: 20180321
  Serious: No
  Sender: FDA-Public Use
  Company Number: PHEH2017US034787

PATIENT
  Sex: Male

DRUGS (1)
  1. OMNITROPE [Suspect]
     Active Substance: SOMATROPIN
     Indication: DWARFISM
     Dosage: 1 MG, QD
     Route: 058
     Dates: start: 201401

REACTIONS (2)
  - Arthralgia [Not Recovered/Not Resolved]
  - Injection site pain [Not Recovered/Not Resolved]
